FAERS Safety Report 14034529 (Version 2)
Quarter: 2018Q1

REPORT INFORMATION
  Report Type: Report from Study
  Country: JP (occurrence: JP)
  Receive Date: 20171003
  Receipt Date: 20180122
  Transmission Date: 20180508
  Serious: Yes (Other)
  Sender: FDA-Public Use
  Company Number: JP-ASTELLAS-2017US039394

PATIENT

DRUGS (1)
  1. TARCEVA [Suspect]
     Active Substance: ERLOTINIB HYDROCHLORIDE
     Indication: NON-SMALL CELL LUNG CANCER
     Dosage: 150 MG, ONCE DAILY (ON DAYS 1-21 OF EVERY 21-DAY CYCLE)
     Route: 048

REACTIONS (10)
  - Nausea [Unknown]
  - Diarrhoea [Unknown]
  - Weight decreased [Unknown]
  - Pain [Unknown]
  - Drug eruption [Unknown]
  - Fatigue [Unknown]
  - Blepharitis [Unknown]
  - Pruritus [Unknown]
  - Dermatitis acneiform [Unknown]
  - Decreased appetite [Unknown]
